FAERS Safety Report 17391221 (Version 19)
Quarter: 2022Q2

REPORT INFORMATION
  Report Type: Spontaneous
  Country: CA (occurrence: CA)
  Receive Date: 20200207
  Receipt Date: 20220612
  Transmission Date: 20220721
  Serious: Yes (Hospitalization, Disabling, Congenital Anomaly, Other)
  Sender: FDA-Public Use
  Company Number: CA-JNJFOC-20170826218

PATIENT
  Age: 40 Year
  Sex: Female

DRUGS (94)
  1. STELARA [Suspect]
     Active Substance: USTEKINUMAB
     Indication: Rheumatoid arthritis
     Route: 058
  2. REMICADE [Suspect]
     Active Substance: INFLIXIMAB
     Indication: Product used for unknown indication
  3. REMICADE [Suspect]
     Active Substance: INFLIXIMAB
     Indication: Rheumatoid arthritis
  4. SIMPONI [Suspect]
     Active Substance: GOLIMUMAB
     Indication: Rheumatoid arthritis
     Route: 058
  5. CETIRIZINE HYDROCHLORIDE [Suspect]
     Active Substance: CETIRIZINE HYDROCHLORIDE
     Indication: Product used for unknown indication
     Route: 065
  6. ACETAMINOPHEN [Suspect]
     Active Substance: ACETAMINOPHEN
     Indication: Product used for unknown indication
     Route: 065
  7. ULTRAM [Suspect]
     Active Substance: TRAMADOL HYDROCHLORIDE
     Indication: Product used for unknown indication
     Route: 065
  8. ENBREL [Suspect]
     Active Substance: ETANERCEPT
     Indication: Rheumatoid arthritis
     Route: 058
     Dates: start: 201201, end: 201205
  9. SIRUKUMAB [Suspect]
     Active Substance: SIRUKUMAB
     Indication: Rheumatoid arthritis
     Route: 065
  10. ACTEMRA [Suspect]
     Active Substance: TOCILIZUMAB
     Indication: Rheumatoid arthritis
     Route: 042
  11. ARAVA [Suspect]
     Active Substance: LEFLUNOMIDE
     Indication: Rheumatoid arthritis
     Route: 048
  12. CIMZIA [Suspect]
     Active Substance: CERTOLIZUMAB PEGOL
     Indication: Rheumatoid arthritis
     Route: 058
  13. CIMZIA [Suspect]
     Active Substance: CERTOLIZUMAB PEGOL
     Route: 058
  14. CIMZIA [Suspect]
     Active Substance: CERTOLIZUMAB PEGOL
     Route: 058
  15. HUMIRA [Suspect]
     Active Substance: ADALIMUMAB
     Indication: Rheumatoid arthritis
     Route: 058
  16. MINOCYCLINE [Suspect]
     Active Substance: MINOCYCLINE HYDROCHLORIDE
     Indication: Rheumatoid arthritis
     Route: 065
  17. RITUXAN [Suspect]
     Active Substance: RITUXIMAB
     Indication: Rheumatoid arthritis
  18. RITUXAN [Suspect]
     Active Substance: RITUXIMAB
  19. RITUXAN [Suspect]
     Active Substance: RITUXIMAB
     Route: 058
  20. XELJANZ [Suspect]
     Active Substance: TOFACITINIB CITRATE
     Indication: Rheumatoid arthritis
     Route: 048
     Dates: start: 20170711
  21. XELJANZ [Suspect]
     Active Substance: TOFACITINIB CITRATE
     Route: 048
  22. XELJANZ [Suspect]
     Active Substance: TOFACITINIB CITRATE
     Route: 048
  23. XELJANZ [Suspect]
     Active Substance: TOFACITINIB CITRATE
     Route: 048
  24. XELJANZ [Suspect]
     Active Substance: TOFACITINIB CITRATE
     Route: 048
  25. MYOCHRYSINE [Suspect]
     Active Substance: GOLD SODIUM THIOMALATE
     Indication: Rheumatoid arthritis
     Route: 030
  26. OTEZLA [Suspect]
     Active Substance: APREMILAST
     Indication: Rheumatoid arthritis
     Route: 048
  27. PLAQUENIL [Suspect]
     Active Substance: HYDROXYCHLOROQUINE SULFATE
     Indication: Rheumatoid arthritis
     Route: 065
     Dates: start: 201103, end: 201106
  28. PLAQUENIL [Suspect]
     Active Substance: HYDROXYCHLOROQUINE SULFATE
     Route: 048
  29. SULFASALAZINE [Suspect]
     Active Substance: SULFASALAZINE
     Indication: Rheumatoid arthritis
     Route: 048
     Dates: start: 201103, end: 201106
  30. GOLD SODIUM THIOMALATE [Suspect]
     Active Substance: GOLD SODIUM THIOMALATE
     Indication: Rheumatoid arthritis
     Route: 030
  31. TOFACITINIB CITRATE [Suspect]
     Active Substance: TOFACITINIB CITRATE
     Indication: Rheumatoid arthritis
     Route: 048
  32. COSENTYX [Suspect]
     Active Substance: SECUKINUMAB
     Indication: Product used for unknown indication
     Route: 065
  33. CERTOLIZUMAB PEGOL [Suspect]
     Active Substance: CERTOLIZUMAB PEGOL
     Indication: Rheumatoid arthritis
     Route: 065
  34. ETANERCEPT [Suspect]
     Active Substance: ETANERCEPT
     Indication: Rheumatoid arthritis
     Route: 065
  35. LEFLUNOMIDE [Suspect]
     Active Substance: LEFLUNOMIDE
     Indication: Rheumatoid arthritis
     Route: 065
  36. TOCILIZUMAB [Suspect]
     Active Substance: TOCILIZUMAB
     Indication: Rheumatoid arthritis
  37. PREDNISONE [Suspect]
     Active Substance: PREDNISONE
     Indication: Rheumatoid arthritis
     Route: 048
  38. PREDNISONE [Suspect]
     Active Substance: PREDNISONE
     Route: 048
  39. PREDNISONE [Suspect]
     Active Substance: PREDNISONE
     Indication: Rheumatoid arthritis
     Route: 048
  40. HYDROXYCHLOROQUINE SULFATE [Suspect]
     Active Substance: HYDROXYCHLOROQUINE SULFATE
     Indication: Rheumatoid arthritis
     Route: 065
  41. HYDROXYCHLOROQUINE SULFATE [Suspect]
     Active Substance: HYDROXYCHLOROQUINE SULFATE
     Route: 058
  42. HYDROXYCHLOROQUINE SULFATE [Suspect]
     Active Substance: HYDROXYCHLOROQUINE SULFATE
     Route: 048
  43. SULFASALAZINE [Suspect]
     Active Substance: SULFASALAZINE
     Indication: Rheumatoid arthritis
     Route: 065
     Dates: start: 201103, end: 201106
  44. SULFASALAZINE [Suspect]
     Active Substance: SULFASALAZINE
     Route: 048
  45. SULFASALAZINE [Suspect]
     Active Substance: SULFASALAZINE
     Route: 048
  46. SULFASALAZINE [Suspect]
     Active Substance: SULFASALAZINE
     Route: 058
  47. SULFASALAZINE [Suspect]
     Active Substance: SULFASALAZINE
     Route: 065
  48. ORENCIA [Suspect]
     Active Substance: ABATACEPT
     Indication: Rheumatoid arthritis
     Route: 048
     Dates: start: 201206, end: 201502
  49. ORENCIA [Suspect]
     Active Substance: ABATACEPT
  50. ORENCIA [Suspect]
     Active Substance: ABATACEPT
  51. ORENCIA [Suspect]
     Active Substance: ABATACEPT
  52. ORENCIA [Suspect]
     Active Substance: ABATACEPT
     Route: 042
  53. METHOTREXATE [Suspect]
     Active Substance: METHOTREXATE
     Indication: Rheumatoid arthritis
     Route: 048
  54. METHOTREXATE [Suspect]
     Active Substance: METHOTREXATE
     Route: 065
  55. METHOTREXATE [Suspect]
     Active Substance: METHOTREXATE
     Route: 048
  56. METHOTREXATE [Suspect]
     Active Substance: METHOTREXATE
     Route: 048
  57. METHOTREXATE [Suspect]
     Active Substance: METHOTREXATE
     Route: 058
  58. GOLD [Suspect]
     Active Substance: GOLD
     Indication: Product used for unknown indication
     Route: 065
  59. HYDROXYCHLOROQUINE [Suspect]
     Active Substance: HYDROXYCHLOROQUINE
     Indication: Rheumatoid arthritis
     Route: 065
  60. ALENDRONATE SODIUM [Suspect]
     Active Substance: ALENDRONATE SODIUM
     Indication: Rheumatoid arthritis
     Route: 048
  61. CETIRIZINE HYDROCHLORIDE [Suspect]
     Active Substance: CETIRIZINE HYDROCHLORIDE
     Indication: Rheumatoid arthritis
     Route: 065
  62. CORTISONE ACETATE [Suspect]
     Active Substance: CORTISONE ACETATE
     Indication: Rheumatoid arthritis
     Route: 048
  63. CORTISONE ACETATE [Suspect]
     Active Substance: CORTISONE ACETATE
     Route: 065
  64. DICLOFENAC SODIUM [Suspect]
     Active Substance: DICLOFENAC SODIUM
     Indication: Product used for unknown indication
     Route: 065
  65. FOLIC ACID [Suspect]
     Active Substance: FOLIC ACID
     Indication: Rheumatoid arthritis
     Route: 065
  66. FOLIC ACID [Suspect]
     Active Substance: FOLIC ACID
     Route: 065
  67. FOLIC ACID [Suspect]
     Active Substance: FOLIC ACID
     Route: 065
  68. FOLIC ACID [Suspect]
     Active Substance: FOLIC ACID
     Route: 065
  69. HUMIRA [Suspect]
     Active Substance: ADALIMUMAB
     Indication: Rheumatoid arthritis
     Route: 058
  70. HYDROCORTISONE ACETATE [Suspect]
     Active Substance: HYDROCORTISONE ACETATE
     Indication: Rheumatoid arthritis
     Route: 065
  71. PHTHALYLSULFATHIAZOLE [Suspect]
     Active Substance: PHTHALYLSULFATHIAZOLE
     Indication: Rheumatoid arthritis
     Route: 058
  72. SARILUMAB [Suspect]
     Active Substance: SARILUMAB
     Indication: Product used for unknown indication
     Route: 065
  73. TOPICORT [Suspect]
     Active Substance: DESOXIMETASONE
     Indication: Rheumatoid arthritis
     Route: 058
  74. TOPICORT [Suspect]
     Active Substance: DESOXIMETASONE
     Route: 048
  75. PSEUDOEPHEDRINE HYDROCHLORIDE [Suspect]
     Active Substance: PSEUDOEPHEDRINE HYDROCHLORIDE
     Indication: Rheumatoid arthritis
     Route: 065
  76. METHOTREXATE SODIUM [Suspect]
     Active Substance: METHOTREXATE SODIUM
     Indication: Product used for unknown indication
     Route: 048
  77. DESOXIMETASONE [Suspect]
     Active Substance: DESOXIMETASONE
     Indication: Rheumatoid arthritis
     Route: 048
  78. FLUMETHASONE PIVALATE [Suspect]
     Active Substance: FLUMETHASONE PIVALATE
     Indication: Rheumatoid arthritis
     Route: 065
  79. FOSAMAX [Suspect]
     Active Substance: ALENDRONATE SODIUM
     Indication: Rheumatoid arthritis
     Route: 065
  80. RITUXIMAB [Suspect]
     Active Substance: RITUXIMAB
     Indication: Rheumatoid arthritis
     Route: 058
  81. RITUXIMAB [Suspect]
     Active Substance: RITUXIMAB
     Route: 042
  82. PREDNISONE [Suspect]
     Active Substance: PREDNISONE
     Indication: Product used for unknown indication
     Route: 048
  83. APREMILAST [Suspect]
     Active Substance: APREMILAST
     Indication: Rheumatoid arthritis
     Route: 065
  84. ERELZI [Suspect]
     Active Substance: ETANERCEPT-SZZS
     Indication: Product used for unknown indication
     Route: 065
  85. FLUMETHASONE PIVALATE [Suspect]
     Active Substance: FLUMETHASONE PIVALATE
     Indication: Product used for unknown indication
     Route: 065
  86. GOLD SODIUM THIOMALATE [Suspect]
     Active Substance: GOLD SODIUM THIOMALATE
     Indication: Product used for unknown indication
     Route: 065
  87. KEVZARA [Suspect]
     Active Substance: SARILUMAB
     Indication: Product used for unknown indication
     Route: 065
  88. MINOCIN [Suspect]
     Active Substance: MINOCYCLINE HYDROCHLORIDE
     Indication: Rheumatoid arthritis
     Route: 065
  89. MINOCYCLINE HYDROCHLORIDE [Suspect]
     Active Substance: MINOCYCLINE HYDROCHLORIDE
     Indication: Product used for unknown indication
     Route: 065
  90. LEFLUNOMIDE [Suspect]
     Active Substance: LEFLUNOMIDE
     Indication: Rheumatoid arthritis
     Route: 065
  91. LEFLUNOMIDE [Suspect]
     Active Substance: LEFLUNOMIDE
     Route: 065
  92. AZATHIOPRINE SODIUM [Suspect]
     Active Substance: AZATHIOPRINE SODIUM
     Indication: Product used for unknown indication
     Route: 065
  93. RHEUMATREX [Concomitant]
     Active Substance: METHOTREXATE SODIUM
     Indication: Rheumatoid arthritis
     Route: 065
     Dates: start: 201106
  94. NAPROXEN [Concomitant]
     Active Substance: NAPROXEN
     Indication: Product used for unknown indication

REACTIONS (84)
  - Pemphigus [Not Recovered/Not Resolved]
  - Systemic lupus erythematosus [Not Recovered/Not Resolved]
  - Drug-induced liver injury [Unknown]
  - Joint swelling [Not Recovered/Not Resolved]
  - Coeliac disease [Not Recovered/Not Resolved]
  - Condition aggravated [Not Recovered/Not Resolved]
  - Grip strength decreased [Not Recovered/Not Resolved]
  - Hepatic enzyme increased [Not Recovered/Not Resolved]
  - Musculoskeletal stiffness [Not Recovered/Not Resolved]
  - Nail disorder [Not Recovered/Not Resolved]
  - Off label use [Not Recovered/Not Resolved]
  - Loss of personal independence in daily activities [Not Recovered/Not Resolved]
  - Onychomycosis [Not Recovered/Not Resolved]
  - Psoriatic arthropathy [Unknown]
  - Abdominal discomfort [Not Recovered/Not Resolved]
  - Rash [Not Recovered/Not Resolved]
  - Dyspepsia [Not Recovered/Not Resolved]
  - Pain [Not Recovered/Not Resolved]
  - Sleep disorder [Not Recovered/Not Resolved]
  - Insomnia [Not Recovered/Not Resolved]
  - Malaise [Not Recovered/Not Resolved]
  - Dyspepsia [Not Recovered/Not Resolved]
  - Abdominal distension [Not Recovered/Not Resolved]
  - Abdominal distension [Not Recovered/Not Resolved]
  - Gastric disorder [Not Recovered/Not Resolved]
  - Adverse reaction [Not Recovered/Not Resolved]
  - Product use in unapproved indication [Not Recovered/Not Resolved]
  - Contraindicated product administered [Not Recovered/Not Resolved]
  - Alopecia [Not Recovered/Not Resolved]
  - Anti-cyclic citrullinated peptide antibody positive [Not Recovered/Not Resolved]
  - Arthropathy [Not Recovered/Not Resolved]
  - Contraindicated product administered [Not Recovered/Not Resolved]
  - Drug intolerance [Not Recovered/Not Resolved]
  - Glossodynia [Not Recovered/Not Resolved]
  - Hand deformity [Not Recovered/Not Resolved]
  - Hip arthroplasty [Not Recovered/Not Resolved]
  - Infusion related reaction [Not Recovered/Not Resolved]
  - Knee arthroplasty [Not Recovered/Not Resolved]
  - Maternal exposure during pregnancy [Not Recovered/Not Resolved]
  - Product use issue [Not Recovered/Not Resolved]
  - Swelling [Not Recovered/Not Resolved]
  - Synovitis [Not Recovered/Not Resolved]
  - Wound [Not Recovered/Not Resolved]
  - Headache [Not Recovered/Not Resolved]
  - Rheumatoid arthritis [Not Recovered/Not Resolved]
  - Rheumatoid factor positive [Not Recovered/Not Resolved]
  - Injection site reaction [Not Recovered/Not Resolved]
  - Arthralgia [Not Recovered/Not Resolved]
  - Nausea [Not Recovered/Not Resolved]
  - General physical health deterioration [Not Recovered/Not Resolved]
  - Fatigue [Not Recovered/Not Resolved]
  - Treatment failure [Not Recovered/Not Resolved]
  - Drug ineffective [Not Recovered/Not Resolved]
  - Drug ineffective [Not Recovered/Not Resolved]
  - Rheumatic fever [Not Recovered/Not Resolved]
  - Nail operation [Not Recovered/Not Resolved]
  - Hypersensitivity [Not Recovered/Not Resolved]
  - Type 2 diabetes mellitus [Not Recovered/Not Resolved]
  - Hypertension [Not Recovered/Not Resolved]
  - Therapeutic product effect decreased [Not Recovered/Not Resolved]
  - Swollen joint count increased [Not Recovered/Not Resolved]
  - Pericarditis [Not Recovered/Not Resolved]
  - Blood cholesterol increased [Not Recovered/Not Resolved]
  - Onychomadesis [Not Recovered/Not Resolved]
  - Back injury [Not Recovered/Not Resolved]
  - C-reactive protein abnormal [Not Recovered/Not Resolved]
  - C-reactive protein increased [Not Recovered/Not Resolved]
  - Confusional state [Not Recovered/Not Resolved]
  - Drug hypersensitivity [Not Recovered/Not Resolved]
  - Fall [Not Recovered/Not Resolved]
  - Finger deformity [Not Recovered/Not Resolved]
  - Gait inability [Not Recovered/Not Resolved]
  - Hepatitis [Not Recovered/Not Resolved]
  - Inflammation [Not Recovered/Not Resolved]
  - Injury [Not Recovered/Not Resolved]
  - Liver function test increased [Not Recovered/Not Resolved]
  - Mobility decreased [Not Recovered/Not Resolved]
  - Muscular weakness [Not Recovered/Not Resolved]
  - Neck pain [Not Recovered/Not Resolved]
  - Pain in extremity [Not Recovered/Not Resolved]
  - Pneumonia [Not Recovered/Not Resolved]
  - Product label confusion [Not Recovered/Not Resolved]
  - Therapeutic product effect incomplete [Not Recovered/Not Resolved]
  - Vomiting [Not Recovered/Not Resolved]

NARRATIVE: CASE EVENT DATE: 20170801
